FAERS Safety Report 9168395 (Version 1)
Quarter: 2013Q1

REPORT INFORMATION
  Report Type: Spontaneous
  Country: US (occurrence: None)
  Receive Date: 20130313
  Receipt Date: 20130313
  Transmission Date: 20140127
  Serious: No
  Sender: FDA-Public Use
  Company Number: None

PATIENT
  Sex: Female

DRUGS (1)
  1. EXJADE 500 MG, 250 MG NOVARTIS [Suspect]
     Dosage: 1250 MG QD PO
     Route: 048
     Dates: start: 201205, end: 201302

REACTIONS (2)
  - Abdominal discomfort [None]
  - Drug intolerance [None]
